FAERS Safety Report 16934330 (Version 1)
Quarter: 2019Q4

REPORT INFORMATION
  Report Type: Spontaneous
  Country: GB (occurrence: GB)
  Receive Date: 20191018
  Receipt Date: 20191018
  Transmission Date: 20200122
  Serious: Yes (Disabling)
  Sender: FDA-Public Use
  Company Number: GB-SUN PHARMACEUTICAL INDUSTRIES LTD-2019RR-223922

PATIENT
  Age: 17 Year
  Sex: Female
  Weight: 65.31 kg

DRUGS (1)
  1. ISOTRETINOIN. [Suspect]
     Active Substance: ISOTRETINOIN
     Indication: ACNE
     Dosage: AFTER BREAKFAST AND DINNER.
     Route: 048
     Dates: start: 201610, end: 201802

REACTIONS (1)
  - Libido decreased [Not Recovered/Not Resolved]
